FAERS Safety Report 6359366-8 (Version None)
Quarter: 2009Q3

REPORT INFORMATION
  Report Type: 
  Country: None (occurrence: None)
  Receive Date: 20090917
  Receipt Date: 20090915
  Transmission Date: 20100115
  Serious: Yes (Hospitalization)
  Sender: FDA-Public Use
  Company Number: US-BRISTOL-MYERS SQUIBB COMPANY-14717284

PATIENT
  Age: 51 Year
  Sex: Female

DRUGS (2)
  1. ABATACEPT [Suspect]
     Indication: COLITIS ULCERATIVE
     Dosage: NO OF COURSE: 9
     Route: 042
     Dates: start: 20080129
  2. PREDNISONE [Concomitant]
     Dates: start: 20090715

REACTIONS (2)
  - CHEST PAIN [None]
  - PYREXIA [None]
